FAERS Safety Report 21491008 (Version 1)
Quarter: 2022Q4

REPORT INFORMATION
  Report Type: Spontaneous
  Country: US (occurrence: US)
  Receive Date: 20221021
  Receipt Date: 20221021
  Transmission Date: 20230113
  Serious: Yes (Other)
  Sender: FDA-Public Use
  Company Number: US-BAYER-2022A140216

PATIENT
  Age: 6 Year
  Sex: Male

DRUGS (2)
  1. KOVALTRY [Suspect]
     Active Substance: ANTIHEMOPHILIC FACTOR, HUMAN RECOMBINANT
     Dosage: 1000 IU
  2. KOVALTRY [Suspect]
     Active Substance: ANTIHEMOPHILIC FACTOR, HUMAN RECOMBINANT
     Dosage: 1 DF, FOR THE LEFT EYE BLEED TREATMENT
     Dates: start: 20221009, end: 20221009

REACTIONS (3)
  - Eye haemorrhage [Recovered/Resolved]
  - Eye injury [None]
  - Fall [None]

NARRATIVE: CASE EVENT DATE: 20221009
